FAERS Safety Report 6383234-9 (Version None)
Quarter: 2009Q3

REPORT INFORMATION
  Report Type: 
  Country: None (occurrence: None)
  Receive Date: 20090929
  Receipt Date: 20090914
  Transmission Date: 20100115
  Serious: Yes (Other)
  Sender: FDA-Public Use
  Company Number: 20090426

PATIENT
  Sex: Male

DRUGS (2)
  1. ATROPINE SULFATE [Suspect]
     Dosage: 0.5 MG INTRAVENOUS
     Route: 042
  2. EPINEPHRINE [Suspect]
     Dosage: 1.0 MG INTRAVENOUS
     Route: 042

REACTIONS (1)
  - THERAPEUTIC PRODUCT INEFFECTIVE [None]
